FAERS Safety Report 24308640 (Version 4)
Quarter: 2024Q4

REPORT INFORMATION
  Report Type: Spontaneous
  Country: PE (occurrence: PE)
  Receive Date: 20240911
  Receipt Date: 20241016
  Transmission Date: 20250114
  Serious: Yes (Death, Other)
  Sender: MERCK
  Company Number: PE-009507513-2409PER003149

PATIENT
  Age: 72 Year
  Sex: Female
  Weight: 44.2 kg

DRUGS (3)
  1. KEYTRUDA [Suspect]
     Active Substance: PEMBROLIZUMAB
     Indication: Squamous cell carcinoma of lung
     Dosage: 200 MILLIGRAM, Q3W
     Route: 042
     Dates: start: 20240726
  2. CARBOPLATIN [Suspect]
     Active Substance: CARBOPLATIN
     Indication: Squamous cell carcinoma of lung
     Dosage: 479 MILLIGRAM
     Route: 042
     Dates: start: 20240726
  3. PACLITAXEL [Suspect]
     Active Substance: PACLITAXEL
     Indication: Squamous cell carcinoma of lung
     Dosage: 241 MILLIGRAM
     Route: 042
     Dates: start: 20240726

REACTIONS (2)
  - Myocardial infarction [Fatal]
  - Back pain [Unknown]

NARRATIVE: CASE EVENT DATE: 20240726
